FAERS Safety Report 18137636 (Version 1)
Quarter: 2020Q3

REPORT INFORMATION
  Report Type: Report from Study
  Country: ES (occurrence: ES)
  Receive Date: 20200812
  Receipt Date: 20200812
  Transmission Date: 20201103
  Serious: Yes (Other)
  Sender: FDA-Public Use
  Company Number: ES-ROCHE-2656406

PATIENT
  Age: 64 Year
  Sex: Male
  Weight: 85 kg

DRUGS (4)
  1. CARBOPLATIN. [Suspect]
     Active Substance: CARBOPLATIN
     Indication: MESOTHELIOMA
     Dosage: D1Q3W; 4?6 CYCLES?DATE OF LAST ADMINISTRATION OF CARBOPLATIN BEFORE SAE: 26/JUN/2020
     Route: 042
     Dates: start: 20200313
  2. PEMETREXED. [Suspect]
     Active Substance: PEMETREXED
     Indication: MESOTHELIOMA
     Dosage: DATE OF LAST DOSE OF PEMETREXED BEFORE SAE: 26/JUN/2020?D1Q3W; 4?6 CYCLES
     Route: 042
     Dates: start: 20200313
  3. ATEZOLIZUMAB. [Suspect]
     Active Substance: ATEZOLIZUMAB
     Indication: MESOTHELIOMA
     Dosage: DATE OF LAST DOSE OF ATEZOLIZUMAB BEFORE SAE: 17/JUL/2020
     Route: 042
     Dates: start: 20200313
  4. BEVACIZUMAB. [Suspect]
     Active Substance: BEVACIZUMAB
     Indication: MESOTHELIOMA
     Dosage: DATE OF LAST DOSE OF BEVACIZUMAB BEFORE SAE: 17/JUL/2020
     Route: 042
     Dates: start: 20200313

REACTIONS (1)
  - Blood creatinine increased [Not Recovered/Not Resolved]

NARRATIVE: CASE EVENT DATE: 20200805
